FAERS Safety Report 4801474-4 (Version None)
Quarter: 2005Q4

REPORT INFORMATION
  Report Type: 
  Country: None (occurrence: None)
  Receive Date: 20051018
  Receipt Date: 20051006
  Transmission Date: 20060501
  Serious: Yes (Other)
  Sender: FDA-Public Use
  Company Number: US-JNJFOC-20051001398

PATIENT
  Sex: Female

DRUGS (11)
  1. INFLIXIMAB [Suspect]
     Indication: RHEUMATOID ARTHRITIS
     Route: 042
  2. FOSAMAX [Concomitant]
  3. METHOTREXATE [Concomitant]
  4. FOLIC ACID [Concomitant]
  5. CALCIUM GLUCONATE [Concomitant]
  6. CELEBREX [Concomitant]
  7. DARVOCET [Concomitant]
  8. DARVOCET [Concomitant]
  9. PROZAC [Concomitant]
  10. SYNTHROID [Concomitant]
  11. TYLENOL (CAPLET) [Concomitant]

REACTIONS (1)
  - BASAL CELL CARCINOMA [None]
